FAERS Safety Report 22187252 (Version 1)
Quarter: 2023Q2

REPORT INFORMATION
  Report Type: Spontaneous
  Country: US (occurrence: US)
  Receive Date: 20230407
  Receipt Date: 20230407
  Transmission Date: 20230721
  Serious: Yes (Death)
  Sender: FDA-Public Use
  Company Number: US-002147023-NVSC2023US080103

PATIENT

DRUGS (1)
  1. MYCOPHENOLATE MOFETIL [Suspect]
     Active Substance: MYCOPHENOLATE MOFETIL
     Indication: Foetal exposure during pregnancy
     Dosage: UNK (MATERNAL DOSE: UNKNOWN)
     Route: 064

REACTIONS (2)
  - Death neonatal [Fatal]
  - Foetal exposure during pregnancy [Unknown]
